FAERS Safety Report 15076568 (Version 1)
Quarter: 2018Q2

REPORT INFORMATION
  Report Type: Report from Study
  Country: CN (occurrence: CN)
  Receive Date: 20180627
  Receipt Date: 20180627
  Transmission Date: 20180711
  Serious: Yes (Death, Hospitalization)
  Sender: FDA-Public Use
  Company Number: CN-MYLANLABS-2018M1045695

PATIENT
  Age: 48 Year
  Sex: Female

DRUGS (1)
  1. PREDNISONE. [Suspect]
     Active Substance: PREDNISONE
     Indication: IMMUNOSUPPRESSANT DRUG THERAPY
     Dosage: UNKNOWN INITIAL DOSE AND THEN TAPERED TO UNKNOWN DOSE
     Route: 065

REACTIONS (4)
  - Infection [Fatal]
  - Septic shock [Fatal]
  - Klebsiella infection [Recovered/Resolved]
  - Liver graft loss [Fatal]
